FAERS Safety Report 17349134 (Version 7)
Quarter: 2021Q1

REPORT INFORMATION
  Report Type: Report from Study
  Country: HK (occurrence: HK)
  Receive Date: 20200130
  Receipt Date: 20210127
  Transmission Date: 20210419
  Serious: Yes (Hospitalization)
  Sender: FDA-Public Use
  Company Number: NVSC2019HK013874

PATIENT
  Age: 72 Year
  Sex: Male
  Weight: 63.2 kg

DRUGS (31)
  1. COMPARATOR CARBOPLATIN [Suspect]
     Active Substance: CARBOPLATIN
     Indication: NON-SMALL CELL LUNG CANCER
     Dosage: 560 MG, Q3W
     Route: 042
     Dates: start: 20191004, end: 20191004
  2. COMPARATOR CARBOPLATIN [Suspect]
     Active Substance: CARBOPLATIN
     Dosage: UNK
     Route: 042
  3. TERBUTALINE SULPHATE [Concomitant]
     Active Substance: TERBUTALINE SULFATE
     Dosage: UNK
     Route: 065
     Dates: start: 20191014, end: 20191022
  4. ACTIFED [Concomitant]
     Indication: COUGH
     Dosage: UNK
     Route: 065
     Dates: start: 20191001, end: 20191024
  5. AKYNZEO [Concomitant]
     Active Substance: NETUPITANT\PALONOSETRON HYDROCHLORIDE
     Indication: PROPHYLAXIS
     Dosage: UNK
     Route: 065
     Dates: start: 20191004, end: 20191004
  6. MORPHINE SULPHATE [Concomitant]
     Active Substance: MORPHINE SULFATE
     Indication: DYSPNOEA
     Dosage: UNK
     Route: 065
     Dates: start: 20191001, end: 20191010
  7. SIMVASTATIN. [Concomitant]
     Active Substance: SIMVASTATIN
     Indication: HYPERLIPIDAEMIA
     Dosage: UNK
     Route: 065
     Dates: start: 20140809
  8. LACTULOSE. [Concomitant]
     Active Substance: LACTULOSE
     Indication: PROPHYLAXIS
     Dosage: UNK
     Route: 065
     Dates: start: 20191001, end: 20200122
  9. PEPCIDINE [Concomitant]
     Active Substance: FAMOTIDINE
     Indication: PREMEDICATION
     Dosage: UNK
     Route: 065
     Dates: start: 20191003, end: 20191004
  10. BISACODYL. [Concomitant]
     Active Substance: BISACODYL
     Dosage: UNK
     Route: 065
     Dates: start: 20191014, end: 20191015
  11. CANAKINUMAB. [Suspect]
     Active Substance: CANAKINUMAB
     Indication: NON-SMALL CELL LUNG CANCER
     Dosage: UNK
     Route: 058
     Dates: start: 20191004
  12. COMPARATOR PACLITAXEL [Suspect]
     Active Substance: PACLITAXEL
     Dosage: UNK
     Route: 042
  13. TERBUTALINE SULPHATE [Concomitant]
     Active Substance: TERBUTALINE SULFATE
     Indication: DYSPNOEA
     Dosage: UNK
     Route: 065
     Dates: start: 20191001, end: 20191010
  14. ACETYLCYSTEINE. [Concomitant]
     Active Substance: ACETYLCYSTEINE
     Indication: PRODUCTIVE COUGH
     Dosage: UNK
     Route: 065
     Dates: start: 20190821
  15. DEXAMETHASONE. [Concomitant]
     Active Substance: DEXAMETHASONE
     Indication: PREMEDICATION
     Dosage: UNK
     Route: 065
     Dates: start: 20191003, end: 20191004
  16. MAXOLON [Concomitant]
     Active Substance: METOCLOPRAMIDE HYDROCHLORIDE
     Indication: PREMEDICATION
     Dosage: UNK
     Route: 065
     Dates: start: 20191004, end: 20191004
  17. AMLODIPINE [Concomitant]
     Active Substance: AMLODIPINE BESYLATE
     Indication: HYPERTENSION
     Dosage: UNK
     Route: 065
     Dates: start: 20180707
  18. SENNA [Concomitant]
     Active Substance: SENNA LEAF\SENNOSIDES\SENNOSIDES A AND B
     Indication: CONSTIPATION
     Dosage: UNK
     Route: 065
     Dates: start: 20191014
  19. BENADRYL [Concomitant]
     Active Substance: DIPHENHYDRAMINE HYDROCHLORIDE
     Indication: PREMEDICATION
     Dosage: UNK
     Route: 065
     Dates: start: 20191004, end: 20191004
  20. DOCUSATE SODIUM. [Concomitant]
     Active Substance: DOCUSATE SODIUM
     Indication: CONSTIPATION
     Dosage: UNK
     Route: 065
     Dates: start: 20191007, end: 20191117
  21. SALBUTAMOL [Concomitant]
     Active Substance: ALBUTEROL
     Indication: DYSPNOEA
     Dosage: UNK
     Route: 065
     Dates: start: 20190821
  22. COMPARATOR PACLITAXEL [Suspect]
     Active Substance: PACLITAXEL
     Indication: NON-SMALL CELL LUNG CANCER
     Dosage: 330 MG, Q3W
     Route: 042
     Dates: start: 20191004, end: 20191004
  23. COMPARATOR PEMBROLIZUMAB [Suspect]
     Active Substance: PEMBROLIZUMAB
     Indication: NON-SMALL CELL LUNG CANCER
     Dosage: 200 MG, Q3W
     Route: 042
     Dates: start: 20191004
  24. LACTULOSE. [Concomitant]
     Active Substance: LACTULOSE
     Indication: CONSTIPATION
  25. POTASSIUM CHLORIDE. [Concomitant]
     Active Substance: POTASSIUM CHLORIDE
     Indication: HYPOKALAEMIA
     Dosage: UNK
     Route: 065
     Dates: start: 20191001, end: 20191001
  26. BISACODYL. [Concomitant]
     Active Substance: BISACODYL
     Indication: CONSTIPATION
     Dosage: UNK
     Route: 065
     Dates: start: 20191007, end: 20191010
  27. HEPARINOID [Concomitant]
     Active Substance: CHONDROITIN SULFATE (BOVINE)
     Indication: PROPHYLAXIS
     Dosage: UNK
     Route: 065
     Dates: start: 20191014, end: 20200429
  28. BETAHISTINE MESILATE [Concomitant]
     Active Substance: BETAHISTINE MESILATE
     Indication: PROPHYLAXIS
     Dosage: UNK
     Route: 065
     Dates: start: 20191005, end: 20191117
  29. DEXAMETHASONE. [Concomitant]
     Active Substance: DEXAMETHASONE
     Dosage: UNK
     Route: 065
     Dates: start: 20191004, end: 20191004
  30. DIPHENHYDRAMINE COMPOUND LINCTUS [Concomitant]
     Indication: COUGH
     Dosage: UNK
     Route: 065
     Dates: start: 20191007, end: 20191011
  31. IPRATROPIUM BROMIDE. [Concomitant]
     Active Substance: IPRATROPIUM BROMIDE
     Indication: DYSPNOEA
     Dosage: UNK
     Route: 065
     Dates: start: 20190821

REACTIONS (1)
  - Neutropenia [Recovered/Resolved]

NARRATIVE: CASE EVENT DATE: 20191015
